FAERS Safety Report 8327053 (Version 2)
Quarter: 2012Q4

REPORT INFORMATION
  Report Type: Spontaneous
  Country: US (occurrence: None)
  Receive Date: 20111229
  Receipt Date: 20120822
  Transmission Date: 20130627
  Serious: Yes (Other)
  Sender: FDA-Public Use
  Company Number: TPA2011A08469

PATIENT
  Age: 70 Year
  Sex: Male
  Weight: 124.74 kg

DRUGS (8)
  1. ACTOS [Suspect]
     Indication: TYPE 2 DIABETES MELLITUS
     Dates: start: 201001, end: 201109
  2. ACTOS [Suspect]
     Indication: TYPE 2 DIABETES MELLITUS
     Dates: start: 200911, end: 201001
  3. ACTOS [Suspect]
     Indication: TYPE 2 DIABETES MELLITUS
     Dates: start: 2006, end: 200908
  4. METFORMIN (METFORMIN) [Concomitant]
  5. EXENATIDE [Concomitant]
  6. JANUMET (METFORMIN HYDROCHLORIDE, SITAGLIPTIN PHOSPHATE) [Concomitant]
  7. NOVOLOG (INSULIN ASPART) [Concomitant]
  8. JANUVIA (SITAGLIPTIN PHOSPHATE) [Concomitant]

REACTIONS (1)
  - Bladder cancer [None]
